FAERS Safety Report 6414348-2 (Version None)
Quarter: 2009Q4

REPORT INFORMATION
  Report Type: 
  Country: None (occurrence: None)
  Receive Date: 20091021
  Receipt Date: 20091010
  Transmission Date: 20100525
  Serious: Yes (Hospitalization)
  Sender: FDA-Public Use
  Company Number: 2009-02927

PATIENT
  Age: 74 Year
  Sex: Female
  Weight: 80 kg

DRUGS (3)
  1. VELCADE [Suspect]
     Indication: MULTIPLE MYELOMA
     Dosage: 2.2 MG
     Dates: start: 20090622, end: 20090625
  2. MELPHALAN(MELPHALAN) [Suspect]
     Indication: MULTIPLE MYELOMA
     Dosage: 14 MG, ORAL
     Route: 048
     Dates: start: 20090622, end: 20090625
  3. PREDNISOLONE [Suspect]
     Dosage: 100 MG, ORAL
     Route: 048
     Dates: start: 20090622, end: 20090625

REACTIONS (2)
  - AFFECT LABILITY [None]
  - DEPRESSION [None]
